FAERS Safety Report 24642829 (Version 6)
Quarter: 2024Q4

REPORT INFORMATION
  Report Type: Spontaneous
  Country: JP (occurrence: JP)
  Receive Date: 20241120
  Receipt Date: 20241224
  Transmission Date: 20250115
  Serious: Yes (Other)
  Sender: AMGEN
  Company Number: JP-AMGEN-JPNSP2024225369

PATIENT
  Age: 66 Year
  Sex: Male

DRUGS (2)
  1. BLINCYTO [Suspect]
     Active Substance: BLINATUMOMAB
     Indication: B precursor type acute leukaemia
     Dosage: 9 MICROGRAM, QD(24 HOURS X 28 DAYS), DRIP INFUSION/PICC
     Route: 040
     Dates: start: 20241111, end: 20241113
  2. BLINCYTO [Suspect]
     Active Substance: BLINATUMOMAB
     Dosage: 28 MICROGRAM, QD (24 HOURS X 28 DAYS), DRIP INFUSION/PICC, DOSE INCREASED
     Route: 040
     Dates: start: 20241122

REACTIONS (10)
  - Liver disorder [Recovered/Resolved]
  - Pyrexia [Recovered/Resolved]
  - Hepatic function abnormal [Recovered/Resolved]
  - Platelet count decreased [Recovering/Resolving]
  - White blood cell count decreased [Recovering/Resolving]
  - Nervous system disorder [Recovered/Resolved]
  - Blood bilirubin increased [Recovered/Resolved]
  - Tremor [Recovered/Resolved]
  - Fall [Unknown]
  - Shoulder fracture [Not Recovered/Not Resolved]

NARRATIVE: CASE EVENT DATE: 20241101
